FAERS Safety Report 15545206 (Version 10)
Quarter: 2022Q1

REPORT INFORMATION
  Report Type: Spontaneous
  Country: US (occurrence: US)
  Receive Date: 20181024
  Receipt Date: 20220106
  Transmission Date: 20220423
  Serious: No
  Sender: FDA-Public Use
  Company Number: US-PFIZER INC-2017316116

PATIENT
  Age: 71 Year
  Sex: Female
  Weight: 78 kg

DRUGS (4)
  1. LYRICA [Suspect]
     Active Substance: PREGABALIN
     Indication: Diabetic neuropathy
     Dosage: 250 MG, 2X/DAY
     Route: 048
     Dates: start: 2007, end: 201707
  2. LYRICA [Suspect]
     Active Substance: PREGABALIN
     Indication: Fibromyalgia
     Dosage: 150 MG, 2X/DAY
     Route: 048
     Dates: end: 2018
  3. LYRICA [Suspect]
     Active Substance: PREGABALIN
     Indication: Sciatica
     Dosage: UNK
  4. LYRICA [Suspect]
     Active Substance: PREGABALIN
     Indication: Neuropathy peripheral
     Dosage: 150 MG, 3X/DAY
     Route: 048

REACTIONS (3)
  - Influenza [Recovered/Resolved]
  - Hypoacusis [Unknown]
  - Paraesthesia [Unknown]

NARRATIVE: CASE EVENT DATE: 20180101
